FAERS Safety Report 15776916 (Version 1)
Quarter: 2018Q4

REPORT INFORMATION
  Report Type: Spontaneous
  Country: US (occurrence: US)
  Receive Date: 20181229
  Receipt Date: 20181229
  Transmission Date: 20190205
  Serious: Yes (Life-Threatening, Other)
  Sender: FDA-Public Use
  Company Number: None

PATIENT
  Age: 32 Year
  Sex: Female
  Weight: 85.5 kg

DRUGS (7)
  1. BALCOTRA (BCP) [Concomitant]
  2. IBUPROFEN. [Concomitant]
     Active Substance: IBUPROFEN
  3. DULOXETINE HCL [Suspect]
     Active Substance: DULOXETINE HYDROCHLORIDE
     Indication: DEPRESSION
     Dosage: ?          QUANTITY:1 CAPSULE(S);?
     Route: 048
  4. ARMODAFINIL. [Concomitant]
     Active Substance: ARMODAFINIL
  5. COD LIVER OIL [Concomitant]
     Active Substance: COD LIVER OIL
  6. DULOXETINE HCL [Suspect]
     Active Substance: DULOXETINE HYDROCHLORIDE
     Indication: PAIN
     Dosage: ?          QUANTITY:1 CAPSULE(S);?
     Route: 048
  7. DULOXETINE HCL [Suspect]
     Active Substance: DULOXETINE HYDROCHLORIDE
     Indication: ANXIETY
     Dosage: ?          QUANTITY:1 CAPSULE(S);?
     Route: 048

REACTIONS (10)
  - Condition aggravated [None]
  - Cataplexy [None]
  - Withdrawal syndrome [None]
  - Suicidal ideation [None]
  - Paraesthesia [None]
  - Injury [None]
  - Nausea [None]
  - Seizure like phenomena [None]
  - Palpitations [None]
  - Tremor [None]

NARRATIVE: CASE EVENT DATE: 20181218
